FAERS Safety Report 20638362 (Version 3)
Quarter: 2022Q3

REPORT INFORMATION
  Report Type: Other
  Country: CA (occurrence: None)
  Receive Date: 20220325
  Receipt Date: 20220821
  Transmission Date: 20221027
  Serious: Yes (Other)
  Sender: FDA-Public Use
  Company Number: CA-ROCHE-3053425

PATIENT
  Age: 53 Year
  Sex: Male

DRUGS (12)
  1. ACTEMRA [Suspect]
     Active Substance: TOCILIZUMAB
     Indication: Rheumatoid arthritis
     Dosage: DRUG DOSE FIRST ADMINISTERED IS 8 MG/KG   MICROGRAM(S)/KILOGRAM
     Route: 042
     Dates: start: 20160121, end: 20210323
  2. ACTEMRA [Suspect]
     Active Substance: TOCILIZUMAB
     Dosage: DRUG DOSE FIRST ADMINISTERED IS 808 MG MILLIGRAM(S)
     Route: 042
     Dates: start: 20210420, end: 20210420
  3. ACTEMRA [Suspect]
     Active Substance: TOCILIZUMAB
     Dosage: DRUG DOSE FIRST ADMINISTERED IS 824 MG MILLIGRAM(S)
     Route: 042
     Dates: start: 20210519, end: 20210519
  4. ACTEMRA [Suspect]
     Active Substance: TOCILIZUMAB
     Dosage: DRUG DOSE FIRST ADMINISTERED IS 784 MG MILLIGRAM(S)
     Route: 042
     Dates: start: 20210617, end: 20210617
  5. ACTEMRA [Suspect]
     Active Substance: TOCILIZUMAB
     Dosage: DRUG DOSE FIRST ADMINISTERED IS 793.6 MG MILLIGRAM(S)
     Route: 042
     Dates: start: 20210715, end: 20210715
  6. ACTEMRA [Suspect]
     Active Substance: TOCILIZUMAB
     Dosage: DRUG DOSE FIRST ADMINISTERED IS 756 MG MILLIGRAM(S)
     Route: 042
     Dates: start: 20210812, end: 2021
  7. ACTEMRA [Suspect]
     Active Substance: TOCILIZUMAB
     Dosage: DRUG DOSE FIRST ADMINISTERED IS 746.4 MG MILLIGRAM(S)
     Route: 042
     Dates: start: 2021, end: 20211015
  8. ACTEMRA [Suspect]
     Active Substance: TOCILIZUMAB
     Dosage: DRUG DOSE FIRST ADMINISTERED IS 768 MG MILLIGRAM(S)
     Route: 042
     Dates: start: 20211109, end: 20211109
  9. ACTEMRA [Suspect]
     Active Substance: TOCILIZUMAB
     Dosage: DRUG DOSE FIRST ADMINISTERED IS 761.6 MG MILLIGRAM(S)
     Route: 042
     Dates: start: 20211209, end: 202201
  10. ACTEMRA [Suspect]
     Active Substance: TOCILIZUMAB
     Dosage: DRUG DOSE FIRST ADMINISTERED IS 737.6 MG MILLIGRAM(S)
     Route: 042
     Dates: start: 20220315
  11. ARAVA [Concomitant]
     Active Substance: LEFLUNOMIDE
  12. METHOTREXATE [Concomitant]
     Active Substance: METHOTREXATE

REACTIONS (3)
  - Pneumonia [Unknown]
  - Pneumonia [Unknown]
  - Fall [Unknown]

NARRATIVE: CASE EVENT DATE: 20220201
